FAERS Safety Report 9804838 (Version 2)
Quarter: 2014Q1

REPORT INFORMATION
  Report Type: Spontaneous
  Country: GB (occurrence: GB)
  Receive Date: 20140108
  Receipt Date: 20140114
  Transmission Date: 20141002
  Serious: Yes (Death, Life-Threatening, Other)
  Sender: FDA-Public Use
  Company Number: GB-BAXTER-2014BAX000022

PATIENT
  Age: 45 Year
  Sex: Female

DRUGS (1)
  1. SODIUM CHLORIDE 0.9% INTRAVENOUS INFUSION BP [Suspect]
     Indication: ARTERIAL THERAPEUTIC PROCEDURE
     Route: 042
     Dates: start: 20131214

REACTIONS (2)
  - Air embolism [Fatal]
  - Cardiac arrest [Fatal]
